FAERS Safety Report 16881620 (Version 1)
Quarter: 2019Q4

REPORT INFORMATION
  Report Type: Spontaneous
  Country: US (occurrence: US)
  Receive Date: 20191003
  Receipt Date: 20191003
  Transmission Date: 20200122
  Serious: No
  Sender: FDA-Public Use
  Company Number: US-ASTRAZENECA-2019SF28361

PATIENT
  Age: 25959 Day
  Sex: Male
  Weight: 93 kg

DRUGS (1)
  1. BYDUREON BCISE [Suspect]
     Active Substance: EXENATIDE
     Indication: TYPE 2 DIABETES MELLITUS
     Route: 058
     Dates: start: 2019

REACTIONS (4)
  - Wrong technique in product usage process [Not Recovered/Not Resolved]
  - Nerve injury [Unknown]
  - Device leakage [Unknown]
  - Circumstance or information capable of leading to medication error [Not Recovered/Not Resolved]

NARRATIVE: CASE EVENT DATE: 20190905
